FAERS Safety Report 12668930 (Version 1)
Quarter: 2016Q3

REPORT INFORMATION
  Report Type: Spontaneous
  Country: US (occurrence: US)
  Receive Date: 20160819
  Receipt Date: 20160819
  Transmission Date: 20161109
  Serious: No
  Sender: FDA-Public Use
  Company Number: US-LUNDBECK-DKLU2014602

PATIENT
  Age: 80 Year
  Sex: Male

DRUGS (1)
  1. NORTHERA [Suspect]
     Active Substance: DROXIDOPA
     Indication: PRODUCT USED FOR UNKNOWN INDICATION
     Route: 065
     Dates: start: 201605

REACTIONS (5)
  - Muscular weakness [Unknown]
  - Confusional state [Unknown]
  - Dysuria [Unknown]
  - Diarrhoea [Unknown]
  - Myalgia [Unknown]

NARRATIVE: CASE EVENT DATE: 201605
